FAERS Safety Report 24194300 (Version 1)
Quarter: 2024Q3

REPORT INFORMATION
  Report Type: Spontaneous
  Country: DE (occurrence: DE)
  Receive Date: 20240809
  Receipt Date: 20240809
  Transmission Date: 20241017
  Serious: Yes (Disabling)
  Sender: MYLAN
  Company Number: DE-DEXPHARM-2024-2415

PATIENT
  Age: 89 Year
  Sex: Female

DRUGS (7)
  1. AMLODIPINE [Interacting]
     Active Substance: AMLODIPINE BESYLATE
     Indication: Product used for unknown indication
     Dosage: 1-0-1-0
     Route: 065
  2. QUETIAPINE [Interacting]
     Active Substance: QUETIAPINE
     Indication: Product used for unknown indication
     Dosage: 0-1-1-0
     Route: 065
  3. BISOPROLOL [Interacting]
     Active Substance: BISOPROLOL\BISOPROLOL FUMARATE
     Indication: Product used for unknown indication
     Dosage: 1-0-1-0
     Route: 065
  4. RAMIPRIL [Interacting]
     Active Substance: RAMIPRIL
     Indication: Product used for unknown indication
     Dosage: 1-0-1-0
     Route: 065
  5. MIRTAZAPINE [Interacting]
     Active Substance: MIRTAZAPINE
     Indication: Product used for unknown indication
     Dosage: 0-0-1-0
     Route: 065
  6. PIPAMPERONE [Interacting]
     Active Substance: PIPAMPERONE
     Indication: Product used for unknown indication
     Dosage: 1-0-1-0
     Route: 065
  7. LEVOTHYROXINE SODIUM [Concomitant]
     Active Substance: LEVOTHYROXINE SODIUM
     Dosage: 1-0-0-0
     Route: 065

REACTIONS (2)
  - Orthostatic hypotension [Recovering/Resolving]
  - Drug interaction [Unknown]
